FAERS Safety Report 14480119 (Version 1)
Quarter: 2018Q1

REPORT INFORMATION
  Report Type: Spontaneous
  Country: US (occurrence: US)
  Receive Date: 20180202
  Receipt Date: 20180202
  Transmission Date: 20180509
  Serious: No
  Sender: FDA-Public Use
  Company Number: US-ALLERGAN-1708239US

PATIENT
  Sex: Female

DRUGS (1)
  1. LAYOLIS FE [Suspect]
     Active Substance: ETHINYL ESTRADIOL\NORETHINDRONE
     Indication: PRODUCT USED FOR UNKNOWN INDICATION
     Dosage: UNK

REACTIONS (5)
  - Hypersensitivity [Unknown]
  - Swollen tongue [Unknown]
  - Product packaging issue [Unknown]
  - Adverse event [Unknown]
  - Peripheral swelling [Unknown]
